FAERS Safety Report 14967030 (Version 1)
Quarter: 2018Q2

REPORT INFORMATION
  Report Type: Report from Study
  Country: IT (occurrence: IT)
  Receive Date: 20180604
  Receipt Date: 20180604
  Transmission Date: 20180711
  Serious: Yes (Death, Other)
  Sender: FDA-Public Use
  Company Number: IT-CHEPLA-C20170694_B

PATIENT

DRUGS (1)
  1. ATRA [Suspect]
     Active Substance: TRETINOIN
     Indication: ACUTE PROMYELOCYTIC LEUKAEMIA

REACTIONS (10)
  - Acute promyelocytic leukaemia differentiation syndrome [Unknown]
  - Neutropenia [Unknown]
  - Haemorrhagic disorder [Unknown]
  - Pyrexia [Unknown]
  - Idiopathic intracranial hypertension [Unknown]
  - Thrombophlebitis [Unknown]
  - Thrombosis [Unknown]
  - Myelodysplastic syndrome [Fatal]
  - Febrile neutropenia [Unknown]
  - Hepatotoxicity [Unknown]
